FAERS Safety Report 7343673-6 (Version None)
Quarter: 2011Q1

REPORT INFORMATION
  Report Type: 
  Country: None (occurrence: None)
  Receive Date: 20110310
  Receipt Date: 20100923
  Transmission Date: 20110831
  Serious: No
  Sender: FDA-Public Use
  Company Number: A0882901A

PATIENT
  Age: 31 Year
  Sex: Male

DRUGS (2)
  1. NICODERM CQ [Suspect]
  2. NICORETTE [Suspect]

REACTIONS (2)
  - OROPHARYNGEAL PAIN [None]
  - NAUSEA [None]
